FAERS Safety Report 6468874-0 (Version None)
Quarter: 2009Q4

REPORT INFORMATION
  Report Type: 
  Country: None (occurrence: None)
  Receive Date: 20091203
  Receipt Date: 20080624
  Transmission Date: 20100525
  Serious: Yes (Hospitalization, Other)
  Sender: FDA-Public Use
  Company Number: US-ELI_LILLY_AND_COMPANY-USA0508104365

PATIENT
  Sex: Female

DRUGS (7)
  1. CYMBALTA [Suspect]
     Indication: DEPRESSION
     Dosage: 60 MG, DAILY (1/D)
     Dates: start: 20040101
  2. HYZAAR [Concomitant]
     Indication: BLOOD PRESSURE
     Dosage: UNK, UNKNOWN
  3. COMBIPATCH [Concomitant]
     Indication: HORMONE REPLACEMENT THERAPY
     Dosage: UNK, UNKNOWN
  4. PRILOSEC [Concomitant]
     Indication: GASTROOESOPHAGEAL REFLUX DISEASE
     Dosage: UNK, UNKNOWN
  5. IBUPROFEN [Concomitant]
     Indication: PAIN
     Dosage: UNK, AS NEEDED
  6. ALEVE [Concomitant]
     Indication: PAIN
     Dosage: UNK, UNKNOWN
  7. NEXIUM [Concomitant]
     Indication: GASTROOESOPHAGEAL REFLUX DISEASE

REACTIONS (17)
  - ABNORMAL BEHAVIOUR [None]
  - ARTHRALGIA [None]
  - BACK PAIN [None]
  - BLOOD PRESSURE INCREASED [None]
  - BONE PAIN [None]
  - DEHYDRATION [None]
  - DEPRESSED MOOD [None]
  - DIZZINESS [None]
  - EMOTIONAL DISTRESS [None]
  - FATIGUE [None]
  - HEART RATE DECREASED [None]
  - HOT FLUSH [None]
  - HYPERHIDROSIS [None]
  - HYPOTENSION [None]
  - PAIN [None]
  - SOCIAL AVOIDANT BEHAVIOUR [None]
  - SYNCOPE [None]
